FAERS Safety Report 20955528 (Version 1)
Quarter: 2022Q2

REPORT INFORMATION
  Report Type: Spontaneous
  Country: US (occurrence: US)
  Receive Date: 20220614
  Receipt Date: 20220614
  Transmission Date: 20220721
  Serious: Yes (Other)
  Sender: FDA-Public Use
  Company Number: US-CHEPLA-2022004765

PATIENT
  Age: 23 Year
  Sex: Male

DRUGS (11)
  1. GANCICLOVIR [Suspect]
     Active Substance: GANCICLOVIR
     Indication: Escherichia bacteraemia
     Route: 065
  2. GANCICLOVIR [Suspect]
     Active Substance: GANCICLOVIR
     Indication: Enterococcal infection
     Route: 065
  3. MEROPENEM [Suspect]
     Active Substance: MEROPENEM
     Indication: Escherichia bacteraemia
     Route: 065
  4. MEROPENEM [Suspect]
     Active Substance: MEROPENEM
     Indication: Enterococcal infection
     Route: 065
  5. FLUCONAZOLE [Suspect]
     Active Substance: FLUCONAZOLE
     Indication: Escherichia bacteraemia
     Route: 065
  6. FLUCONAZOLE [Suspect]
     Active Substance: FLUCONAZOLE
     Indication: Enterococcal infection
     Route: 065
  7. VANCOMYCIN [Suspect]
     Active Substance: VANCOMYCIN
     Indication: Enterococcal infection
     Route: 065
  8. VANCOMYCIN [Suspect]
     Active Substance: VANCOMYCIN
     Indication: Escherichia bacteraemia
     Route: 065
  9. ACYCLOVIR [Suspect]
     Active Substance: ACYCLOVIR
     Route: 065
  10. PENICILLIN V POTASSIUM [Suspect]
     Active Substance: PENICILLIN V POTASSIUM
     Route: 065
  11. PENTAMIDINE [Suspect]
     Active Substance: PENTAMIDINE
     Dosage: INHALATION
     Route: 065

REACTIONS (2)
  - Graft versus host disease [Unknown]
  - Product use in unapproved indication [Recovered/Resolved]
